FAERS Safety Report 8847016 (Version 1)
Quarter: 2012Q4

REPORT INFORMATION
  Report Type: Spontaneous
  Country: JP (occurrence: None)
  Receive Date: 20121016
  Receipt Date: 20121016
  Transmission Date: 20130627
  Serious: Yes (Hospitalization)
  Sender: FDA-Public Use
  Company Number: US-2012-10986

PATIENT
  Age: 71 Year
  Sex: Male

DRUGS (3)
  1. CILOSTAZOL [Suspect]
     Indication: ANTIPLATELET THERAPY
  2. ASPIRIN (ASPIRIN) [Concomitant]
  3. OZAGREL (OZAGREL) [Concomitant]

REACTIONS (4)
  - Carotid artery thrombosis [None]
  - Thrombosis in device [None]
  - Aphasia [None]
  - Hemiparesis [None]
